FAERS Safety Report 7510628-8 (Version None)
Quarter: 2011Q2

REPORT INFORMATION
  Report Type: 
  Country: None (occurrence: None)
  Receive Date: 20110530
  Receipt Date: 20110516
  Transmission Date: 20111010
  Serious: Yes (Other)
  Sender: FDA-Public Use
  Company Number: US-RANBAXY-2011US-44789

PATIENT
  Age: 30 Year
  Sex: Female

DRUGS (1)
  1. SERTRALINE HYDROCHLORIDE [Suspect]
     Indication: PRODUCT USED FOR UNKNOWN INDICATION
     Dosage: UNK, UNK
     Route: 065

REACTIONS (6)
  - SUICIDE ATTEMPT [None]
  - IRRITABILITY [None]
  - FEELING ABNORMAL [None]
  - SUICIDAL IDEATION [None]
  - TEARFULNESS [None]
  - IMPULSIVE BEHAVIOUR [None]
